FAERS Safety Report 21423531 (Version 2)
Quarter: 2023Q1

REPORT INFORMATION
  Report Type: Spontaneous
  Country: US (occurrence: US)
  Receive Date: 20221007
  Receipt Date: 20230105
  Transmission Date: 20230418
  Serious: No
  Sender: FDA-Public Use
  Company Number: US-HERON THERAPEUTICS, INC-HRTX-2022-000847

PATIENT
  Age: 73 Year
  Sex: Female

DRUGS (2)
  1. ZYNRELEF [Suspect]
     Active Substance: BUPIVACAINE\MELOXICAM
     Indication: Postoperative analgesia
     Dosage: 14 MILLILITER, SINGLE
     Route: 065
     Dates: start: 20220919, end: 20220919
  2. PROPOFOL [Concomitant]
     Active Substance: PROPOFOL
     Indication: Anaesthesia

REACTIONS (1)
  - Peroneal nerve palsy [Recovered/Resolved]

NARRATIVE: CASE EVENT DATE: 20220920
